FAERS Safety Report 21954434 (Version 3)
Quarter: 2023Q1

REPORT INFORMATION
  Report Type: Spontaneous
  Country: DE (occurrence: DE)
  Receive Date: 20230204
  Receipt Date: 20230302
  Transmission Date: 20230417
  Serious: Yes (Other)
  Sender: FDA-Public Use
  Company Number: DE-002147023-NVSC2023DE024237

PATIENT
  Age: 79 Year
  Sex: Male

DRUGS (3)
  1. MYFORTIC [Suspect]
     Active Substance: MYCOPHENOLATE SODIUM
     Indication: Prophylaxis against transplant rejection
     Dosage: 4 DOSAGE FORMS, BID (2-0-2) (360)
     Route: 065
  2. MYFORTIC [Suspect]
     Active Substance: MYCOPHENOLATE SODIUM
     Dosage: UNK, BID (1-0-1)
     Route: 065
  3. MYFORTIC [Suspect]
     Active Substance: MYCOPHENOLATE SODIUM
     Dosage: 1 DOSAGE FORM, QD (0-0-1) (360 FOR SEVERAL DAYS)
     Route: 065

REACTIONS (5)
  - Spinal stenosis [Unknown]
  - Transplantation complication [Unknown]
  - Corneal opacity [Unknown]
  - Gait disturbance [Unknown]
  - Product use in unapproved indication [Unknown]
